FAERS Safety Report 14309482 (Version 2)
Quarter: 2018Q2

REPORT INFORMATION
  Report Type: Report from Study
  Country: BE (occurrence: BE)
  Receive Date: 20171220
  Receipt Date: 20180423
  Transmission Date: 20180711
  Serious: Yes (Hospitalization)
  Sender: FDA-Public Use
  Company Number: BE-SA-2017SA245229

PATIENT
  Age: 40 Year
  Sex: Female

DRUGS (2)
  1. GILENYA [Suspect]
     Active Substance: FINGOLIMOD HYDROCHLORIDE
     Indication: MULTIPLE SCLEROSIS
     Route: 048
     Dates: start: 20130131, end: 20151215
  2. LEMTRADA [Suspect]
     Active Substance: ALEMTUZUMAB
     Indication: MULTIPLE SCLEROSIS
     Route: 041
     Dates: start: 201601

REACTIONS (10)
  - Anaemia [Recovered/Resolved]
  - Urinary incontinence [Unknown]
  - Calculus urinary [Not Recovered/Not Resolved]
  - Ureteric obstruction [Recovering/Resolving]
  - Nausea [Unknown]
  - Hydronephrosis [Unknown]
  - Pyrexia [Unknown]
  - Kidney rupture [Unknown]
  - Decreased appetite [Unknown]
  - Renal colic [Unknown]

NARRATIVE: CASE EVENT DATE: 20140218
